FAERS Safety Report 6760695-4 (Version None)
Quarter: 2010Q2

REPORT INFORMATION
  Report Type: 
  Country: None (occurrence: None)
  Receive Date: 20100608
  Receipt Date: 20100528
  Transmission Date: 20101027
  Serious: Yes (Hospitalization)
  Sender: FDA-Public Use
  Company Number: CH-WYE-G06191710

PATIENT
  Age: 79 Year
  Sex: Male

DRUGS (8)
  1. PIPERACILLIN AND TAZOBACTAM [Interacting]
     Indication: STAPHYLOCOCCAL INFECTION
     Route: 051
     Dates: start: 20081201, end: 20081231
  2. ENALAPRIL MALEATE [Interacting]
     Dosage: UNKNOWN START DATE, STOPPED ON 31-DEC-2008, 5 MG ONCE DAILY
     Route: 048
  3. PANTOZOL [Concomitant]
     Dosage: DOSE AND FREQUENCY UNKNOWN
     Route: 048
  4. NOVOMIX [Concomitant]
     Dosage: DOSE AND FREQUENCY UNKNOWN
  5. POTASSIUM CHLORIDE [Concomitant]
     Dosage: DOSE AND FREUQECY UNKNOWN
     Route: 048
  6. ASPIRIN [Concomitant]
     Dosage: DOSE AND FREQUENCY UNKNOWN
     Route: 048
  7. VANCOMYCIN HCL [Suspect]
     Indication: STAPHYLOCOCCAL INFECTION
     Route: 051
     Dates: start: 20081201, end: 20081231
  8. TORSEMIDE [Interacting]
     Dosage: START DATE UNKNOWN, STOPPED ON 31-DEC-2008, 10 MG DAILY
     Route: 048

REACTIONS (2)
  - DRUG INTERACTION [None]
  - RENAL FAILURE ACUTE [None]
